FAERS Safety Report 6635496-8 (Version None)
Quarter: 2010Q1

REPORT INFORMATION
  Report Type: 
  Country: None (occurrence: None)
  Receive Date: 20100315
  Receipt Date: 20091012
  Transmission Date: 20100710
  Serious: No
  Sender: FDA-Public Use
  Company Number: US-ABBOTT-09P-163-0602570-00

PATIENT
  Sex: Male
  Weight: 72.64 kg

DRUGS (3)
  1. DEPAKOTE [Suspect]
     Indication: BIPOLAR I DISORDER
     Dates: start: 20090101, end: 20090101
  2. DEPAKOTE [Interacting]
     Dates: start: 20090101
  3. MARIJUANA [Interacting]
     Indication: DRUG USE FOR UNKNOWN INDICATION

REACTIONS (5)
  - DEPRESSED MOOD [None]
  - DRUG INTERACTION [None]
  - EUPHORIC MOOD [None]
  - FATIGUE [None]
  - HYPERSOMNIA [None]
